FAERS Safety Report 4374434-8 (Version None)
Quarter: 2004Q2

REPORT INFORMATION
  Report Type: 
  Country: None (occurrence: None)
  Receive Date: 20040609
  Receipt Date: 20040609
  Transmission Date: 20050107
  Serious: Yes (Other)
  Sender: FDA-Public Use
  Company Number: None

PATIENT
  Sex: Female
  Weight: 27.2158 kg

DRUGS (2)
  1. NIX [Suspect]
     Indication: LICE INFESTATION
     Dosage: 1 BOTTLE APPROX ONCE A WEEK
     Dates: start: 20010801, end: 20020801
  2. RID MOUSSE [Concomitant]

REACTIONS (4)
  - BREAST DISORDER FEMALE [None]
  - DRUG INEFFECTIVE [None]
  - HEADACHE [None]
  - PITUITARY TUMOUR [None]
